FAERS Safety Report 4568611-0 (Version None)
Quarter: 2005Q1

REPORT INFORMATION
  Report Type: 
  Country: None (occurrence: None)
  Receive Date: 20050118
  Receipt Date: 20040719
  Transmission Date: 20050727
  Serious: Yes (Other)
  Sender: FDA-Public Use
  Company Number: HQWYE310621JUL04

PATIENT
  Age: 50 Year
  Sex: Female

DRUGS (4)
  1. PREMPRO [Suspect]
     Indication: HORMONE REPLACEMENT THERAPY
     Dosage: ORAL
     Route: 048
     Dates: start: 20010101, end: 20020601
  2. ESTRATEST (ESTROGENS ETERIFIED/METHYLTESTOSTERONE) [Suspect]
     Dosage: ORAL
     Route: 048
     Dates: start: 20020601, end: 20020701
  3. PREMPHASE (PREMARIN;CYCRIN 14/14) [Suspect]
     Dosage: ORAL
     Route: 048
     Dates: start: 20010101, end: 20020601
  4. PROVERA [Suspect]
     Dosage: ORAL
     Route: 048
     Dates: start: 20010101, end: 20020601

REACTIONS (1)
  - UTERINE CANCER [None]
